FAERS Safety Report 4895403-5 (Version None)
Quarter: 2006Q1

REPORT INFORMATION
  Report Type: 
  Country: None (occurrence: None)
  Receive Date: 20060130
  Receipt Date: 20050406
  Transmission Date: 20060701
  Serious: No
  Sender: FDA-Public Use
  Company Number: US-GLAXOSMITHKLINE-A0553036A

PATIENT
  Age: 19 Year
  Sex: Male

DRUGS (5)
  1. COMBIVIR [Suspect]
     Indication: DRUG USE FOR UNKNOWN INDICATION
     Dosage: 1TAB TWICE PER DAY
     Route: 048
     Dates: start: 20010101, end: 20050402
  2. PAXIL CR [Concomitant]
  3. EPZICOM [Concomitant]
  4. VIRAMUNE [Concomitant]
  5. MULTI-VITAMIN [Concomitant]

REACTIONS (7)
  - ABNORMAL DREAMS [None]
  - ANOREXIA [None]
  - ARTHRALGIA [None]
  - BACK PAIN [None]
  - FEELING JITTERY [None]
  - LETHARGY [None]
  - MENTAL IMPAIRMENT [None]
